FAERS Safety Report 22176951 (Version 1)
Quarter: 2023Q2

REPORT INFORMATION
  Report Type: Other
  Country: US (occurrence: US)
  Receive Date: 20230405
  Receipt Date: 20230405
  Transmission Date: 20230721
  Serious: No
  Sender: FDA-Public Use
  Company Number: US-Prasco Laboratories-PRAS20230091

PATIENT
  Age: 46 Year
  Sex: Male

DRUGS (1)
  1. ESTRADIOL [Suspect]
     Active Substance: ESTRADIOL
     Indication: Exposure via partner
     Dosage: NOT APPLICABLE
     Route: 061

REACTIONS (2)
  - Penile dermatitis [Not Recovered/Not Resolved]
  - Exposure via partner [Unknown]
